FAERS Safety Report 6775338-3 (Version None)
Quarter: 2010Q2

REPORT INFORMATION
  Report Type: 
  Country: None (occurrence: None)
  Receive Date: 20100617
  Receipt Date: 20100608
  Transmission Date: 20101027
  Serious: Yes (Death, Other)
  Sender: FDA-Public Use
  Company Number: US-PFIZER INC-2009284370

PATIENT
  Age: 43 Year
  Sex: Female

DRUGS (1)
  1. CHANTIX [Suspect]
     Dosage: UNK

REACTIONS (4)
  - ALCOHOL ABUSE [None]
  - COMPLETED SUICIDE [None]
  - DEPRESSION [None]
  - HYPERPHAGIA [None]
